FAERS Safety Report 5165665-8 (Version None)
Quarter: 2006Q4

REPORT INFORMATION
  Report Type: 
  Country: None (occurrence: None)
  Receive Date: 20061128
  Receipt Date: 20061116
  Transmission Date: 20070319
  Serious: Yes (Life-Threatening, Hospitalization)
  Sender: FDA-Public Use
  Company Number: HQWYE364023JUN06

PATIENT
  Age: 59 Year
  Sex: Female

DRUGS (4)
  1. PROGRAF [Suspect]
     Indication: PROPHYLAXIS AGAINST TRANSPLANT REJECTION
     Dosage: 2 MG 1X PER 12 HR ORAL
     Route: 048
     Dates: start: 20030706
  2. CALCIUM WITH VITAMIN D (CALCIUM PHOSPHATE/CALCIUM SODIUM LACTATE/ERGOC [Concomitant]
  3. LAMIVUDINE [Concomitant]
  4. PROTONIX [Concomitant]

REACTIONS (5)
  - ASTHENIA [None]
  - CLONUS [None]
  - GLIOBLASTOMA MULTIFORME [None]
  - HEADACHE [None]
  - PARAESTHESIA [None]
